FAERS Safety Report 12985827 (Version 1)
Quarter: 2016Q4

REPORT INFORMATION
  Report Type: Spontaneous
  Country: US (occurrence: US)
  Receive Date: 20161130
  Receipt Date: 20161130
  Transmission Date: 20170207
  Serious: No
  Sender: FDA-Public Use
  Company Number: US-009507513-1611USA010196

PATIENT
  Age: 28 Year
  Sex: Female

DRUGS (1)
  1. ASMANEX HFA [Suspect]
     Active Substance: MOMETASONE FUROATE
     Indication: ASTHMA
     Dosage: UNK

REACTIONS (4)
  - Product quality control issue [Unknown]
  - No adverse event [Unknown]
  - Drug dose omission [Unknown]
  - Product taste abnormal [Unknown]
